FAERS Safety Report 10067821 (Version 1)
Quarter: 2014Q2

REPORT INFORMATION
  Report Type: Spontaneous
  Country: US (occurrence: US)
  Receive Date: 20140409
  Receipt Date: 20140409
  Transmission Date: 20141212
  Serious: Yes (Other)
  Sender: FDA-Public Use
  Company Number: US-PURDUE-USA-2014-0112738

PATIENT
  Age: 26 Year
  Sex: Male

DRUGS (3)
  1. OXYCONTIN (NDA 22-272) [Suspect]
     Indication: POST-TRAUMATIC STRESS DISORDER
     Dosage: UNK
     Route: 065
     Dates: start: 2011
  2. BENZODIAZEPINE DERIVATIVES [Suspect]
  3. ANTIDEPRESSANTS [Suspect]

REACTIONS (6)
  - Suicidal ideation [Unknown]
  - Homicidal ideation [Unknown]
  - Post-traumatic stress disorder [Unknown]
  - Aggression [Unknown]
  - Anger [Unknown]
  - Anxiety [Unknown]
